FAERS Safety Report 9179256 (Version 1)
Quarter: 2012Q4

REPORT INFORMATION
  Report Type: 
  Country: AT (occurrence: AT)
  Receive Date: 20121029
  Receipt Date: 20121029
  Transmission Date: 20130627
  Serious: Yes (Death, Hospitalization)
  Sender: FDA-Public Use
  Company Number: AT-B.I. PHARMACEUTICALS,INC./RIDGEFIELD-2012-AP-00905AP

PATIENT
  Age: 85 Year
  Sex: Female

DRUGS (3)
  1. PRADAXA [Suspect]
     Indication: KNEE OPERATION
     Route: 048
     Dates: start: 20121008, end: 20121018
  2. SPIRIVA [Concomitant]
     Indication: CHRONIC OBSTRUCTIVE PULMONARY DISEASE
  3. BERODUAL [Concomitant]
     Indication: CHRONIC OBSTRUCTIVE PULMONARY DISEASE

REACTIONS (2)
  - Death [Fatal]
  - Thrombosis [Not Recovered/Not Resolved]
